FAERS Safety Report 23776244 (Version 1)
Quarter: 2024Q2

REPORT INFORMATION
  Report Type: Other
  Country: US (occurrence: None)
  Receive Date: 20240424
  Receipt Date: 20240424
  Transmission Date: 20240716
  Serious: Yes (Hospitalization, Other)
  Sender: FDA-Public Use
  Company Number: US-ROCHE-2296320

PATIENT
  Age: 90 Year
  Sex: Male

DRUGS (1)
  1. ESBRIET [Suspect]
     Active Substance: PIRFENIDONE
     Indication: Idiopathic pulmonary fibrosis
     Dosage: THREE CAPSULES THREE TIMES A DAY,
     Route: 048
     Dates: start: 2018

REACTIONS (7)
  - Pneumonia [Recovered/Resolved]
  - Renal injury [Unknown]
  - Nausea [Recovered/Resolved]
  - Vomiting [Unknown]
  - Rash [Recovered/Resolved]
  - Dizziness [Recovered/Resolved]
  - Lung disorder [Not Recovered/Not Resolved]

NARRATIVE: CASE EVENT DATE: 20180101
